FAERS Safety Report 17477895 (Version 2)
Quarter: 2020Q1

REPORT INFORMATION
  Report Type: Report from Study
  Country: GB (occurrence: GB)
  Receive Date: 20200228
  Receipt Date: 20200318
  Transmission Date: 20200409
  Serious: Yes (Hospitalization)
  Sender: FDA-Public Use
  Company Number: GB-JNJFOC-20191201916

PATIENT
  Sex: Female

DRUGS (1)
  1. STELARA [Suspect]
     Active Substance: USTEKINUMAB
     Indication: CROHN^S DISEASE
     Route: 058
     Dates: start: 20181207

REACTIONS (6)
  - Abdominal pain upper [Unknown]
  - Dyspnoea [Unknown]
  - Arthralgia [Unknown]
  - Infection [Unknown]
  - Pain [Unknown]
  - Anger [Unknown]
